FAERS Safety Report 20774119 (Version 3)
Quarter: 2022Q2

REPORT INFORMATION
  Report Type: Spontaneous
  Country: US (occurrence: US)
  Receive Date: 20220502
  Receipt Date: 20220616
  Transmission Date: 20220721
  Serious: No
  Sender: FDA-Public Use
  Company Number: US-PFIZER INC-202200640187

PATIENT
  Age: 65 Year
  Sex: Male
  Weight: 95.25 kg

DRUGS (2)
  1. PAXLOVID [Suspect]
     Active Substance: NIRMATRELVIR\RITONAVIR
     Indication: COVID-19 treatment
     Dosage: 2X/DAY (EVERY 12 HOUR THE 3 PILL)
     Dates: start: 20220427
  2. LOSARTAN [Concomitant]
     Active Substance: LOSARTAN
     Dosage: 25 MG

REACTIONS (2)
  - Dysgeusia [Not Recovered/Not Resolved]
  - Sleep disorder [Unknown]

NARRATIVE: CASE EVENT DATE: 20220401
